FAERS Safety Report 7308307-5 (Version None)
Quarter: 2011Q1

REPORT INFORMATION
  Report Type: 
  Country: None (occurrence: None)
  Receive Date: 20110223
  Receipt Date: 20110215
  Transmission Date: 20110831
  Serious: Yes (Other)
  Sender: FDA-Public Use
  Company Number: A0913797A

PATIENT
  Sex: Female

DRUGS (3)
  1. WELLBUTRIN [Suspect]
     Indication: BIPOLAR II DISORDER
     Route: 048
  2. PAXIL [Suspect]
     Indication: BIPOLAR II DISORDER
     Dosage: 90MG PER DAY
     Route: 048
  3. NO CONCURRENT MEDICATION [Concomitant]

REACTIONS (4)
  - HOMICIDAL IDEATION [None]
  - DRUG INEFFECTIVE [None]
  - ANGER [None]
  - PARAESTHESIA [None]
